FAERS Safety Report 11617606 (Version 4)
Quarter: 2015Q4

REPORT INFORMATION
  Report Type: Spontaneous
  Country: US (occurrence: US)
  Receive Date: 20151009
  Receipt Date: 20151202
  Transmission Date: 20160304
  Serious: Yes (Other)
  Sender: FDA-Public Use
  Company Number: US-BAYER-2015-438681

PATIENT
  Sex: Female
  Weight: 56.69 kg

DRUGS (1)
  1. AFRIN ORIGINAL [Suspect]
     Active Substance: OXYMETAZOLINE HYDROCHLORIDE
     Indication: NASAL CONGESTION
     Dosage: 1 DF, BID
     Route: 045
     Dates: start: 1982

REACTIONS (4)
  - Drug dependence [None]
  - Choking sensation [None]
  - Dyspnoea [None]
  - Product use issue [None]
